FAERS Safety Report 9528703 (Version 1)
Quarter: 2013Q3

REPORT INFORMATION
  Report Type: Spontaneous
  Country: CA (occurrence: CA)
  Receive Date: 20130917
  Receipt Date: 20130917
  Transmission Date: 20140515
  Serious: Yes (Other)
  Sender: FDA-Public Use
  Company Number: CA-JNJFOC-20130907021

PATIENT
  Age: 57 Year
  Sex: Female

DRUGS (3)
  1. RISPERIDONE [Suspect]
     Indication: MAJOR DEPRESSION
     Route: 065
  2. RISPERIDONE [Suspect]
     Indication: MAJOR DEPRESSION
     Route: 065
  3. QUETIAPINE [Suspect]
     Indication: MAJOR DEPRESSION
     Route: 065

REACTIONS (1)
  - Serotonin syndrome [Recovered/Resolved]
